FAERS Safety Report 23357443 (Version 1)
Quarter: 2023Q4

REPORT INFORMATION
  Report Type: Spontaneous
  Country: US (occurrence: None)
  Receive Date: 20231229
  Receipt Date: 20231229
  Transmission Date: 20240109
  Serious: Yes (Hospitalization)
  Sender: FDA-Public Use
  Company Number: None

PATIENT
  Age: 73 Year
  Sex: Female

DRUGS (2)
  1. TACROLIMUS [Suspect]
     Active Substance: TACROLIMUS
     Indication: Renal transplant
     Dosage: 2MG BID  TWICE DAILY BY MOUTH
     Route: 048
     Dates: start: 20150501
  2. MYCOPHENOLATE MOFETIL [Suspect]
     Active Substance: MYCOPHENOLATE MOFETIL
     Indication: Renal transplant
     Dosage: 1000MG BID TWICE DAILY BY MOUTH?
     Route: 048
     Dates: start: 20150501

REACTIONS (4)
  - Nausea [None]
  - Vomiting [None]
  - Fall [None]
  - Concussion [None]

NARRATIVE: CASE EVENT DATE: 20231224
